FAERS Safety Report 9109848 (Version 1)
Quarter: 2013Q1

REPORT INFORMATION
  Report Type: Spontaneous
  Country: US (occurrence: US)
  Receive Date: 20130222
  Receipt Date: 20130222
  Transmission Date: 20140127
  Serious: Yes (Other)
  Sender: FDA-Public Use
  Company Number: US-JNJFOC-20130206585

PATIENT
  Age: 38 Year
  Sex: Male

DRUGS (2)
  1. USTEKINUMAB [Suspect]
     Indication: PSORIASIS
     Dosage: 1ST DOSE WAS ADMINISTERED 4 WEEKS AFTER LAST DOSE OF ETANERCEPT; 2ND DOSE WAS 4 WKS AFTER FIRST DOSE
     Route: 058
  2. ETANERCEPT [Suspect]
     Indication: PSORIASIS
     Dosage: FOR 12 CONSECUTIVE WEEKS AND 12 WEEKS LATER, 50 MG ONCE WEEKLY FOR RECURRENT PSORIASIS
     Route: 065

REACTIONS (1)
  - Psoriatic arthropathy [Recovered/Resolved]
